FAERS Safety Report 6841530-2 (Version None)
Quarter: 2010Q3

REPORT INFORMATION
  Report Type: 
  Country: None (occurrence: None)
  Receive Date: 20100714
  Receipt Date: 20070910
  Transmission Date: 20110219
  Serious: No
  Sender: FDA-Public Use
  Company Number: US-PFIZER INC-2007056653

PATIENT
  Sex: Female
  Weight: 45.8 kg

DRUGS (20)
  1. CHANTIX [Suspect]
     Indication: SMOKING CESSATION THERAPY
     Dates: start: 20070301
  2. ISOSORBIDE MONONITRATE [Concomitant]
  3. QUINAPRIL [Concomitant]
  4. LESCOL [Concomitant]
  5. CALCIUM [Concomitant]
  6. FOSAMAX [Concomitant]
  7. CALCIUM WITH VITAMIN D [Concomitant]
  8. MAGNESIUM [Concomitant]
  9. TRAMADOL [Concomitant]
  10. POTASSIUM CHLORIDE [Concomitant]
  11. PANCRELIPASE [Concomitant]
  12. CENTRUM [Concomitant]
  13. LASIX [Concomitant]
  14. FEXOFENADINE [Concomitant]
  15. TOPAMAX [Concomitant]
  16. LORAZEPAM [Concomitant]
  17. ACETYLSALICYLIC ACID [Concomitant]
  18. ADVAIR DISKUS 100/50 [Concomitant]
     Route: 055
  19. SPIRIVA [Concomitant]
     Route: 055
  20. CHROMAGEN [Concomitant]

REACTIONS (3)
  - ABNORMAL DREAMS [None]
  - FEAR [None]
  - THYROID FUNCTION TEST ABNORMAL [None]
